FAERS Safety Report 15695012 (Version 1)
Quarter: 2018Q4

REPORT INFORMATION
  Report Type: Spontaneous
  Country: US (occurrence: US)
  Receive Date: 20181206
  Receipt Date: 20181206
  Transmission Date: 20190205
  Serious: No
  Sender: FDA-Public Use
  Company Number: US-ENDO PHARMACEUTICALS INC-2018-026733

PATIENT
  Sex: Male
  Weight: 74.83 kg

DRUGS (9)
  1. XIAFLEX [Suspect]
     Active Substance: COLLAGENASE CLOSTRIDIUM HISTOLYTICUM
     Dosage: CYCLE FOUR: INJECTION ONE
     Route: 026
     Dates: start: 2018
  2. XIAFLEX [Suspect]
     Active Substance: COLLAGENASE CLOSTRIDIUM HISTOLYTICUM
     Dosage: CYCLE ONE: INJECTION TWO
     Route: 026
     Dates: start: 2018
  3. XIAFLEX [Suspect]
     Active Substance: COLLAGENASE CLOSTRIDIUM HISTOLYTICUM
     Dosage: CYCLE TWO: INJECTION ONE
     Route: 026
     Dates: start: 2018
  4. XIAFLEX [Suspect]
     Active Substance: COLLAGENASE CLOSTRIDIUM HISTOLYTICUM
     Dosage: CYCLE THREE: INJECTION TWO
     Route: 026
     Dates: start: 2018
  5. XIAFLEX [Suspect]
     Active Substance: COLLAGENASE CLOSTRIDIUM HISTOLYTICUM
     Indication: PEYRONIE^S DISEASE
     Dosage: CYCLE ONE: INJECTION ONE
     Route: 026
     Dates: start: 201801
  6. XIAFLEX [Suspect]
     Active Substance: COLLAGENASE CLOSTRIDIUM HISTOLYTICUM
     Dosage: CYCLE THREE: INJECTION ONE
     Route: 026
     Dates: start: 2018
  7. XIAFLEX [Suspect]
     Active Substance: COLLAGENASE CLOSTRIDIUM HISTOLYTICUM
     Dosage: CYCLE FOUR: INJECTION TWO
     Route: 026
     Dates: start: 20180712, end: 20180712
  8. TESTOSTERONE. [Concomitant]
     Active Substance: TESTOSTERONE
     Indication: PRODUCT USED FOR UNKNOWN INDICATION
  9. XIAFLEX [Suspect]
     Active Substance: COLLAGENASE CLOSTRIDIUM HISTOLYTICUM
     Dosage: CYCLE TWO: INJECTION TWO
     Route: 026
     Dates: start: 2018

REACTIONS (6)
  - Incorrect dose administered [Recovered/Resolved]
  - Penile pain [Unknown]
  - Drug ineffective [Recovered/Resolved]
  - Condition aggravated [Recovering/Resolving]
  - Peyronie^s disease [Recovering/Resolving]
  - Penile contusion [Recovered/Resolved]

NARRATIVE: CASE EVENT DATE: 2018
